FAERS Safety Report 7096195-4 (Version None)
Quarter: 2010Q4

REPORT INFORMATION
  Report Type: 
  Country: None (occurrence: None)
  Receive Date: 20101103
  Receipt Date: 20100929
  Transmission Date: 20110411
  Serious: Yes (Death)
  Sender: FDA-Public Use
  Company Number: JP-SOLVAY-00310005964

PATIENT
  Age: 30 Year
  Sex: Female

DRUGS (3)
  1. FLUVOXAMINE MALEATE [Suspect]
     Indication: DEPRESSION
     Dosage: 200 DOSAGE FORM ORAL
     Route: 048
     Dates: start: 20100915, end: 20100915
  2. ALPRAZOLAM [Suspect]
  3. GABAPENTIN [Concomitant]

REACTIONS (2)
  - DRUG TOXICITY [None]
  - INTENTIONAL OVERDOSE [None]
